FAERS Safety Report 5008305-0 (Version None)
Quarter: 2006Q2

REPORT INFORMATION
  Report Type: 
  Country: None (occurrence: None)
  Receive Date: 20060523
  Receipt Date: 20060515
  Transmission Date: 20061013
  Serious: Yes (Other)
  Sender: FDA-Public Use
  Company Number: US-JNJFOC-20060501571

PATIENT
  Sex: Female
  Weight: 58.97 kg

DRUGS (4)
  1. ORTHO EVRA [Suspect]
     Indication: CONTRACEPTION
     Route: 062
     Dates: start: 20060504, end: 20060512
  2. ORTHO EVRA [Suspect]
     Route: 062
     Dates: start: 20060504, end: 20060512
  3. ORTHO EVRA [Suspect]
     Indication: HORMONE THERAPY
     Route: 062
     Dates: start: 20060504, end: 20060512
  4. ALBUTEROL SULFATE AUTOHALER [Concomitant]
     Indication: ASTHMA
     Route: 055

REACTIONS (10)
  - DEPRESSION [None]
  - EMOTIONAL DISORDER [None]
  - EUPHORIC MOOD [None]
  - HEADACHE [None]
  - HYPOGLYCAEMIA [None]
  - LIBIDO INCREASED [None]
  - NAUSEA [None]
  - SPEECH DISORDER [None]
  - SUICIDAL IDEATION [None]
  - VOMITING [None]
